FAERS Safety Report 8838690 (Version 5)
Quarter: 2013Q3

REPORT INFORMATION
  Report Type: Spontaneous
  Country: US (occurrence: US)
  Receive Date: 20121012
  Receipt Date: 20130719
  Transmission Date: 20140515
  Serious: Yes (Hospitalization)
  Sender: FDA-Public Use
  Company Number: US-009507513-1210USA002082

PATIENT
  Sex: Female
  Weight: 63.49 kg

DRUGS (1)
  1. NUVARING [Suspect]
     Indication: CONTRACEPTION
     Dosage: UNK
     Route: 067
     Dates: start: 20081130, end: 200910

REACTIONS (7)
  - Arthroscopy [Unknown]
  - Venous thrombosis [Unknown]
  - Road traffic accident [Unknown]
  - Patellofemoral pain syndrome [Unknown]
  - Head injury [Unknown]
  - Debridement [Unknown]
  - Epistaxis [Unknown]
